FAERS Safety Report 6699106-6 (Version None)
Quarter: 2010Q2

REPORT INFORMATION
  Report Type: 
  Country: None (occurrence: None)
  Receive Date: 20100423
  Receipt Date: 20100408
  Transmission Date: 20101027
  Serious: Yes (Hospitalization)
  Sender: FDA-Public Use
  Company Number: 7001102

PATIENT
  Age: 63 Year
  Sex: Male

DRUGS (1)
  1. SAIZEN [Suspect]
     Dosage: 8 MG, 6 IN 1 WK
     Dates: start: 20080401, end: 20090801

REACTIONS (1)
  - PANCREATITIS [None]
